FAERS Safety Report 7738550-2 (Version None)
Quarter: 2011Q3

REPORT INFORMATION
  Report Type: 
  Country: None (occurrence: None)
  Receive Date: 20110906
  Receipt Date: 20110819
  Transmission Date: 20111222
  Serious: Yes (Hospitalization)
  Sender: FDA-Public Use
  Company Number: AUR-APL-2011-03182

PATIENT
  Age: 24 Year
  Sex: Male
  Weight: 59 kg

DRUGS (5)
  1. FERROUS FUMARATE [Concomitant]
  2. CODEINE PHOSPHATE (CODEINE PHOSPHATE) [Concomitant]
  3. FOLIC ACID [Concomitant]
  4. TEMAZEPAM [Concomitant]
  5. CITALOPRAM HYDROBROMIDE [Suspect]
     Indication: DEPRESSION
     Dosage: (40 MG), ORAL
     Route: 048
     Dates: end: 20110510

REACTIONS (3)
  - DUODENAL ULCER [None]
  - ABDOMINAL PAIN [None]
  - DUODENAL PERFORATION [None]
